FAERS Safety Report 7260582-1 (Version None)
Quarter: 2011Q1

REPORT INFORMATION
  Report Type: 
  Country: None (occurrence: None)
  Receive Date: 20110128
  Receipt Date: 20110128
  Transmission Date: 20110831
  Serious: No
  Sender: FDA-Public Use
  Company Number: None

PATIENT
  Age: 69 Year
  Sex: Female

DRUGS (1)
  1. UTILET ALCOHOL SWABS TRIAD [Suspect]
     Dosage: USE PRIOR TO INJECTING INSULIN

REACTIONS (3)
  - SKIN ULCER [None]
  - DERMATITIS CONTACT [None]
  - STAPHYLOCOCCAL SKIN INFECTION [None]
